FAERS Safety Report 5319420-6 (Version None)
Quarter: 2007Q2

REPORT INFORMATION
  Report Type: 
  Country: None (occurrence: None)
  Receive Date: 20070508
  Receipt Date: 20070423
  Transmission Date: 20071010
  Serious: Yes (Hospitalization)
  Sender: FDA-Public Use
  Company Number: IT-GENENTECH-226838

PATIENT
  Sex: Male
  Weight: 62 kg

DRUGS (6)
  1. BEVACIZUMAB [Suspect]
     Indication: COLON CANCER
     Dosage: 315 MG, Q2W
     Route: 042
     Dates: start: 20060612, end: 20060727
  2. OXALIPLATIN [Suspect]
     Indication: COLON CANCER
     Dosage: 120 MG, Q2W
     Route: 042
     Dates: start: 20060612, end: 20060727
  3. LEUCOVORIN CALCIUM [Suspect]
     Indication: COLON CANCER
     Dosage: 345 MG, UNK
     Route: 042
     Dates: start: 20060612, end: 20060727
  4. FLUOROURACIL [Suspect]
     Indication: COLON CANCER
     Dosage: 1032 MG, UNK
     Route: 042
     Dates: start: 20060612, end: 20060727
  5. NORVASC [Concomitant]
     Indication: DRUG USE FOR UNKNOWN INDICATION
     Dosage: UNK, UNK
     Dates: start: 20060328, end: 20060727
  6. TRIATEC [Concomitant]
     Indication: DRUG USE FOR UNKNOWN INDICATION
     Dates: start: 20060328

REACTIONS (2)
  - ANAL FISTULA [None]
  - INTESTINAL OBSTRUCTION [None]
